FAERS Safety Report 7117923-5 (Version None)
Quarter: 2010Q4

REPORT INFORMATION
  Report Type: 
  Country: None (occurrence: None)
  Receive Date: 20101123
  Receipt Date: 20101109
  Transmission Date: 20110411
  Serious: Yes (Hospitalization)
  Sender: FDA-Public Use
  Company Number: ES-RANBAXY-2010RR-37536

PATIENT
  Age: 75 Year
  Sex: Female

DRUGS (10)
  1. CIPROFLOXACIN [Suspect]
     Indication: PYELONEPHRITIS
     Dosage: 750 MG, BID
  2. CEFTRIAXONE [Concomitant]
     Dosage: 1 G, QD
     Route: 042
  3. PAROXETINE HCL [Concomitant]
     Dosage: 20 MG, UNK
  4. LORAZEPAM [Concomitant]
     Dosage: 5 MG, UNK
  5. BISOPROLOL FUMARATE [Concomitant]
     Dosage: 5 MG, UNK
  6. ENALAPRIL [Concomitant]
     Dosage: 20 MG, UNK
  7. TORASEMIDE [Concomitant]
     Dosage: 5 MG, UNK
  8. OMEPRAZOLE [Concomitant]
     Dosage: 20 MG, UNK
  9. ASPIRIN [Concomitant]
     Dosage: 100 MG, UNK
  10. NITROGLYCERIN [Concomitant]
     Dosage: UNK
     Route: 060

REACTIONS (1)
  - MANIA [None]
